FAERS Safety Report 23344386 (Version 2)
Quarter: 2024Q1

REPORT INFORMATION
  Report Type: Report from Study
  Country: US (occurrence: US)
  Receive Date: 20231228
  Receipt Date: 20240102
  Transmission Date: 20240410
  Serious: Yes (Hospitalization, Other)
  Sender: FDA-Public Use
  Company Number: US-ABBVIE-5553451

PATIENT
  Sex: Female

DRUGS (7)
  1. VENCLEXTA [Suspect]
     Active Substance: VENETOCLAX
     Indication: Anaemia
     Route: 048
     Dates: start: 202301, end: 202312
  2. CEFDINIR [Concomitant]
     Active Substance: CEFDINIR
     Indication: Product used for unknown indication
  3. FAMOTIDINE [Concomitant]
     Active Substance: FAMOTIDINE
     Indication: Product used for unknown indication
     Dosage: AT BEDTIME
  4. LISINOPRIL AND HYDROCHLOROTHIAZIDE [Concomitant]
     Active Substance: HYDROCHLOROTHIAZIDE\LISINOPRIL
     Indication: Product used for unknown indication
     Dates: start: 2023
  5. PROMEPRAZOLE [Concomitant]
     Indication: Product used for unknown indication
  6. SUCRALFATE [Concomitant]
     Active Substance: SUCRALFATE
     Indication: Product used for unknown indication
     Dosage: FOR 30 DAYS
  7. FLUTICASONE [Concomitant]
     Active Substance: FLUTICASONE
     Indication: Product used for unknown indication
     Dosage: ON PUFF IN NOSTRIL ONCE A DAY

REACTIONS (19)
  - Haemoglobin decreased [Recovering/Resolving]
  - Hospitalisation [Recovered/Resolved]
  - Platelet count decreased [Recovering/Resolving]
  - Depression [Recovering/Resolving]
  - Infection [Unknown]
  - Asthenia [Unknown]
  - Pneumonia [Unknown]
  - Pyrexia [Unknown]
  - Vomiting [Unknown]
  - Headache [Recovered/Resolved]
  - Hypertension [Unknown]
  - Memory impairment [Recovering/Resolving]
  - Feeding disorder [Recovering/Resolving]
  - Bladder disorder [Unknown]
  - Nausea [Unknown]
  - Haemorrhage [Unknown]
  - White blood cell count decreased [Recovering/Resolving]
  - Unevaluable event [Unknown]
  - Hypophagia [Unknown]

NARRATIVE: CASE EVENT DATE: 20230101
